FAERS Safety Report 16350814 (Version 1)
Quarter: 2019Q2

REPORT INFORMATION
  Report Type: Spontaneous
  Country: JP (occurrence: JP)
  Receive Date: 20190524
  Receipt Date: 20190524
  Transmission Date: 20190711
  Serious: Yes (Death, Hospitalization, Other)
  Sender: FDA-Public Use
  Company Number: JP-ASTELLAS-2019US021821

PATIENT
  Age: 7 Decade
  Sex: Male

DRUGS (2)
  1. AMPHOTERICIN B, LIPOSOME [Suspect]
     Active Substance: AMPHOTERICIN B
     Indication: FUNGAL INFECTION
     Dosage: 2.5 MG/KG, ONCE DAILY (DURATION 2 WEEKS)
     Route: 041
  2. FUNGUARD [Concomitant]
     Active Substance: MICAFUNGIN SODIUM
     Indication: FUNGAL INFECTION
     Dosage: UNK UNK, UNKNOWN FREQ.
     Route: 065

REACTIONS (1)
  - Neoplasm malignant [Fatal]
